FAERS Safety Report 8855489 (Version 1)
Quarter: 2012Q4

REPORT INFORMATION
  Report Type: 
  Country: US (occurrence: US)
  Receive Date: 20121023
  Receipt Date: 20121023
  Transmission Date: 20130627
  Serious: No
  Sender: FDA-Public Use
  Company Number: US-AMGEN-USASP2012059943

PATIENT
  Age: 68 Year
  Sex: Female

DRUGS (10)
  1. ENBREL [Suspect]
     Indication: PRODUCT USED FOR UNKNOWN INDICATION
     Dosage: 50 mg, 2 times/wk
     Route: 058
  2. VYTORIN [Concomitant]
     Dosage: 10-40 mg
  3. NEXIUM                             /01479302/ [Concomitant]
     Dosage: 40 mg, UNK
  4. ZYRTEC [Concomitant]
     Dosage: 10 mg, UNK
  5. OXYCODONE [Concomitant]
     Dosage: 10 mg ER, UNK
  6. PERCOCET                           /00446701/ [Concomitant]
     Dosage: 10-325 mg
  7. HUMULIN [Concomitant]
     Dosage: INJ 70/30
  8. LISINOPRIL [Concomitant]
     Dosage: 2.5 mg, UNK
  9. LASIX                              /00032601/ [Concomitant]
     Dosage: 20 mg, UNK
  10. CRESTOR [Concomitant]
     Dosage: 5 mg, UNK

REACTIONS (1)
  - Localised infection [Unknown]
